FAERS Safety Report 23371413 (Version 1)
Quarter: 2024Q1

REPORT INFORMATION
  Report Type: Spontaneous
  Country: CH (occurrence: CH)
  Receive Date: 20240105
  Receipt Date: 20240105
  Transmission Date: 20240410
  Serious: Yes (Other)
  Sender: FDA-Public Use
  Company Number: None

PATIENT
  Age: 32 Year
  Sex: Male

DRUGS (3)
  1. OCREVUS [Suspect]
     Active Substance: OCRELIZUMAB
     Indication: Relapsing-remitting multiple sclerosis
     Dosage: THE LAST DOSE WAS IN JUNE/2023
     Route: 041
     Dates: start: 202206
  2. EUTHYROX [Concomitant]
     Active Substance: LEVOTHYROXINE SODIUM
  3. CALCIUM\CHOLECALCIFEROL [Concomitant]
     Active Substance: CALCIUM\CHOLECALCIFEROL

REACTIONS (1)
  - Crohn^s disease [Not Recovered/Not Resolved]

NARRATIVE: CASE EVENT DATE: 20230901
